FAERS Safety Report 10263635 (Version 2)
Quarter: 2014Q2

REPORT INFORMATION
  Report Type: Report from Study
  Country: FR (occurrence: FR)
  Receive Date: 20140626
  Receipt Date: 20140626
  Transmission Date: 20141212
  Serious: Yes (Hospitalization)
  Sender: FDA-Public Use
  Company Number: FR-TEVA-431927ISR

PATIENT
  Age: 82 Year
  Sex: Female
  Weight: 64 kg

DRUGS (2)
  1. EFFENTORA [Suspect]
     Indication: PRODUCT USED FOR UNKNOWN INDICATION
     Dosage: ON REQUEST
     Route: 002
     Dates: start: 20130709, end: 20130903
  2. OXYCODONE [Concomitant]
     Indication: PAIN
     Dosage: 10 MILLIGRAM DAILY;
     Route: 048
     Dates: start: 20130709, end: 20130903

REACTIONS (3)
  - Pain [Unknown]
  - Anaemia [Unknown]
  - Coronary artery disease [Unknown]
